FAERS Safety Report 5833635-X (Version None)
Quarter: 2008Q3

REPORT INFORMATION
  Report Type: 
  Country: None (occurrence: None)
  Receive Date: 20080801
  Receipt Date: 20080725
  Transmission Date: 20090109
  Serious: Yes (Death)
  Sender: FDA-Public Use
  Company Number: 163-21880-08071521

PATIENT
  Age: 70 Year
  Sex: Female

DRUGS (3)
  1. REVLIMID [Suspect]
     Indication: MULTIPLE MYELOMA
     Dosage: 5 MG, 1 IN 1 D, ORAL; 15 MG, 1 IN 1 DAY, ORAL; 25 MG, 1 IN 1 D, ORAL
     Route: 048
     Dates: start: 20071205, end: 20080101
  2. REVLIMID [Suspect]
     Indication: MULTIPLE MYELOMA
     Dosage: 5 MG, 1 IN 1 D, ORAL; 15 MG, 1 IN 1 DAY, ORAL; 25 MG, 1 IN 1 D, ORAL
     Route: 048
     Dates: start: 20080227, end: 20080601
  3. REVLIMID [Suspect]
     Indication: MULTIPLE MYELOMA
     Dosage: 5 MG, 1 IN 1 D, ORAL; 15 MG, 1 IN 1 DAY, ORAL; 25 MG, 1 IN 1 D, ORAL
     Route: 048
     Dates: start: 20080601, end: 20080701

REACTIONS (2)
  - CARDIAC FAILURE CONGESTIVE [None]
  - CONVULSION [None]
